FAERS Safety Report 23812758 (Version 1)
Quarter: 2024Q2

REPORT INFORMATION
  Report Type: Spontaneous
  Country: FI (occurrence: FI)
  Receive Date: 20240503
  Receipt Date: 20240503
  Transmission Date: 20240715
  Serious: Yes (Disabling)
  Sender: FDA-Public Use
  Company Number: None

PATIENT
  Age: 37 Year
  Sex: Male

DRUGS (1)
  1. OLANZAPINE [Suspect]
     Active Substance: OLANZAPINE
     Indication: Psychotic disorder
     Dosage: ACCORDING TO THE PRESCRIPTION 3 TABLETS, BUT ACCORDING TO THE LAST DISCUSSION WITH THE DOCTOR 2 T...
     Route: 048
     Dates: start: 2013

REACTIONS (9)
  - Paranoia [Recovered/Resolved]
  - Product quality issue [Recovered/Resolved]
  - Thirst [Recovered/Resolved]
  - Product formulation issue [Recovered/Resolved]
  - Impaired work ability [Recovered/Resolved]
  - Product complaint [Recovered/Resolved]
  - Initial insomnia [Recovered/Resolved]
  - Feeling abnormal [Recovered/Resolved]
  - Mental impairment [Recovered/Resolved]

NARRATIVE: CASE EVENT DATE: 20240101
